FAERS Safety Report 8398172-X (Version None)
Quarter: 2012Q2

REPORT INFORMATION
  Report Type: 
  Country: None (occurrence: None)
  Receive Date: 20120531
  Receipt Date: 20120521
  Transmission Date: 20120825
  Serious: Yes (Hospitalization)
  Sender: FDA-Public Use
  Company Number: US-SANOFI-AVENTIS-2012SA033960

PATIENT
  Age: 72 Year
  Sex: Female
  Weight: 91 kg

DRUGS (15)
  1. ASPIRIN [Concomitant]
  2. PROTONIX [Concomitant]
  3. FISH OIL [Concomitant]
  4. PROTONIX [Concomitant]
  5. NOVOLOG [Concomitant]
     Dosage: DOSE:20 UNIT(S)
  6. MULTI-VITAMINS [Concomitant]
  7. HUMALOG [Concomitant]
     Dosage: DOSE:30 UNIT(S)
  8. FENOFIBRATE [Concomitant]
     Dates: start: 20120125
  9. PRINIVIL [Concomitant]
  10. IMDUR [Concomitant]
     Dates: start: 20120209
  11. VITAMIN D [Concomitant]
  12. PRILOSEC [Concomitant]
     Dates: start: 20120221
  13. VITAMIN C [Concomitant]
  14. PLAVIX [Suspect]
     Route: 048
     Dates: start: 20110210, end: 20120410
  15. COREG [Concomitant]

REACTIONS (2)
  - GASTROOESOPHAGEAL REFLUX DISEASE [None]
  - ABDOMINAL DISCOMFORT [None]
